FAERS Safety Report 14933668 (Version 1)
Quarter: 2018Q2

REPORT INFORMATION
  Report Type: Spontaneous
  Country: US (occurrence: US)
  Receive Date: 20180524
  Receipt Date: 20180524
  Transmission Date: 20180711
  Serious: Yes (Other)
  Sender: FDA-Public Use
  Company Number: US-BEH-2018090854

PATIENT
  Sex: Male

DRUGS (2)
  1. IDELVION [Suspect]
     Active Substance: COAGULATION FACTOR IX RECOMBINANT HUMAN
     Dosage: REPEAT Q 48-72 HOURS X 3 PRN
     Route: 042
     Dates: start: 20131223
  2. IDELVION [Suspect]
     Active Substance: COAGULATION FACTOR IX RECOMBINANT HUMAN
     Indication: FACTOR IX DEFICIENCY
     Dosage: 3000-5000 UNITS, WEEKLY
     Route: 042
     Dates: start: 20131223

REACTIONS (2)
  - Arthralgia [Unknown]
  - Haemarthrosis [Unknown]
